FAERS Safety Report 15804119 (Version 2)
Quarter: 2019Q1

REPORT INFORMATION
  Report Type: Report from Study
  Country: US (occurrence: US)
  Receive Date: 20190109
  Receipt Date: 20190214
  Transmission Date: 20190417
  Serious: Yes (Other)
  Sender: FDA-Public Use
  Company Number: US-ACTELION-A-NJ2018-181316

PATIENT
  Age: 59 Year
  Sex: Male
  Weight: 66.67 kg

DRUGS (2)
  1. AMLODIPINE [Concomitant]
     Active Substance: AMLODIPINE BESYLATE
  2. OPSUMIT [Suspect]
     Active Substance: MACITENTAN
     Indication: PULMONARY ARTERIAL HYPERTENSION
     Dosage: 10 MG, QD
     Route: 048

REACTIONS (11)
  - Dyspnoea [Unknown]
  - Carpal tunnel syndrome [Unknown]
  - Hepatic cancer [Unknown]
  - Respiratory disorder [Unknown]
  - Cough [Unknown]
  - Pain [Unknown]
  - Gout [Unknown]
  - Chest pain [Recovered/Resolved]
  - Nasopharyngitis [Unknown]
  - Spinal column stenosis [Unknown]
  - Hypertension [Unknown]
